FAERS Safety Report 9109965 (Version 1)
Quarter: 2013Q1

REPORT INFORMATION
  Report Type: Report from Study
  Country: MX (occurrence: MX)
  Receive Date: 20130222
  Receipt Date: 20130222
  Transmission Date: 20140127
  Serious: Yes (Death, Hospitalization, Other)
  Sender: FDA-Public Use
  Company Number: MX-BRISTOL-MYERS SQUIBB COMPANY-15902182

PATIENT
  Age: 83 Year
  Sex: Male

DRUGS (3)
  1. IPILIMUMAB [Suspect]
     Indication: PROSTATE CANCER
     Dosage: INTERRUPTED ON 24JUL11?NO. OF COURSES:3; 117 MG TOTAL DOSE
     Route: 042
     Dates: start: 20110512
  2. DICLOFENAC [Concomitant]
     Dates: start: 20110710, end: 20110713
  3. PARACETAMOL [Concomitant]
     Dates: start: 20110711, end: 20110713

REACTIONS (2)
  - Renal failure [Fatal]
  - Diarrhoea [Fatal]
